FAERS Safety Report 5330340-3 (Version None)
Quarter: 2007Q2

REPORT INFORMATION
  Report Type: 
  Country: None (occurrence: None)
  Receive Date: 20070521
  Receipt Date: 20070509
  Transmission Date: 20071010
  Serious: Yes (Hospitalization)
  Sender: FDA-Public Use
  Company Number: BR-PFIZER INC-2006084042

PATIENT
  Sex: Female

DRUGS (1)
  1. DALACIN T [Suspect]
     Indication: SKIN ODOUR ABNORMAL
     Dosage: TEXT:20 MG/ML
     Route: 064
     Dates: start: 20060623, end: 20060101

REACTIONS (2)
  - DRUG EXPOSURE DURING PREGNANCY [None]
  - INFANTILE APNOEIC ATTACK [None]
